FAERS Safety Report 6322385-1 (Version None)
Quarter: 2009Q3

REPORT INFORMATION
  Report Type: 
  Country: None (occurrence: None)
  Receive Date: 20090824
  Receipt Date: 20090211
  Transmission Date: 20100115
  Serious: No
  Sender: FDA-Public Use
  Company Number: US-ABBOTT-09P-163-0503316-00

PATIENT
  Sex: Male
  Weight: 97.61 kg

DRUGS (6)
  1. NIASPAN [Suspect]
     Indication: HIGH DENSITY LIPOPROTEIN DECREASED
     Route: 048
     Dates: start: 20070101
  2. COUMADIN [Concomitant]
     Indication: ARRHYTHMIA
     Dosage: ALT WITH 4MG
     Route: 048
  3. HYTRIN [Concomitant]
     Indication: CARDIAC DISORDER
     Route: 048
     Dates: start: 19940101
  4. METOPROLOL [Concomitant]
     Indication: HEART RATE
     Route: 048
  5. FLOBEE [Concomitant]
     Indication: RENAL DISORDER
     Route: 048
  6. FLOBEE [Concomitant]
     Indication: VITAMIN SUPPLEMENTATION

REACTIONS (4)
  - BURNING SENSATION [None]
  - PAIN OF SKIN [None]
  - PARAESTHESIA [None]
  - PRURITUS [None]
